FAERS Safety Report 4325282-6 (Version None)
Quarter: 2004Q1

REPORT INFORMATION
  Report Type: 
  Country: None (occurrence: None)
  Receive Date: 20040324
  Receipt Date: 20040308
  Transmission Date: 20041129
  Serious: Yes (Hospitalization)
  Sender: FDA-Public Use
  Company Number: 205386

PATIENT
  Age: 43 Year
  Sex: Female

DRUGS (2)
  1. HERCEPTIN [Suspect]
     Indication: BREAST CANCER METASTATIC
     Dosage: 4 MG/KG, SINGLE
     Dates: start: 20030201, end: 20030201
  2. HERCEPTIN [Suspect]
     Indication: BREAST CANCER METASTATIC
     Dosage: 4 MG/KG, SINGLE
     Dates: start: 20030101, end: 20031124

REACTIONS (6)
  - DRUG INEFFECTIVE [None]
  - FACE OEDEMA [None]
  - NAUSEA [None]
  - OEDEMA [None]
  - PYREXIA [None]
  - VERTIGO [None]
